FAERS Safety Report 5120902-0 (Version None)
Quarter: 2006Q4

REPORT INFORMATION
  Report Type: 
  Country: None (occurrence: None)
  Receive Date: 20061003
  Receipt Date: 20061003
  Transmission Date: 20070319
  Serious: Yes (Life-Threatening)
  Sender: FDA-Public Use
  Company Number: None

PATIENT
  Age: 53 Year
  Sex: Male
  Weight: 88.4 kg

DRUGS (1)
  1. TETRABENAZINE   25 MG   CAMBRIDGE LABS [Suspect]
     Indication: TOURETTE'S DISORDER
     Dosage: 25 MG 5 TIMES DAILY PO
     Route: 048

REACTIONS (16)
  - ABDOMINAL PAIN [None]
  - BLOOD CALCIUM INCREASED [None]
  - DEHYDRATION [None]
  - ELECTROCARDIOGRAM QT PROLONGED [None]
  - ELECTROCARDIOGRAM ST SEGMENT DEPRESSION [None]
  - ESCHERICHIA INFECTION [None]
  - HYPOTENSION [None]
  - HYPOXIA [None]
  - INFECTION [None]
  - MULTI-ORGAN FAILURE [None]
  - NAUSEA [None]
  - PANCREATIC PHLEGMON [None]
  - PANCREATITIS NECROTISING [None]
  - RENAL FAILURE ACUTE [None]
  - RESPIRATORY FAILURE [None]
  - VOMITING [None]
